FAERS Safety Report 9416736 (Version 3)
Quarter: 2013Q3

REPORT INFORMATION
  Report Type: Spontaneous
  Country: PT (occurrence: PT)
  Receive Date: 20130724
  Receipt Date: 20130729
  Transmission Date: 20140515
  Serious: Yes (Death, Other)
  Sender: FDA-Public Use
  Company Number: PT-PFIZER INC-2013213947

PATIENT
  Age: 75 Year
  Sex: Male

DRUGS (9)
  1. SUTENT [Suspect]
     Indication: PANCREATIC NEUROENDOCRINE TUMOUR
     Dosage: 37.5 MG, CYCLIC (4 WEEKS ON, 2 WEEKS OFF)
     Route: 048
     Dates: start: 20130124, end: 20130613
  2. FENOFIBRATE [Concomitant]
     Indication: DYSLIPIDAEMIA
     Dosage: UNK
  3. NICARDIPINE [Concomitant]
     Dosage: UNK
  4. LASIX [Concomitant]
     Dosage: UNK
  5. PERMIXON [Concomitant]
     Indication: PROSTATIC DISORDER
     Dosage: UNK
  6. RANITIDINE [Concomitant]
     Dosage: UNK
  7. MAGNESIOCARD [Concomitant]
     Dosage: UNK
  8. STUGERON [Concomitant]
     Dosage: UNK
  9. MICARDIS PLUS [Concomitant]
     Indication: HYPERTENSION
     Dosage: UNK

REACTIONS (4)
  - Sudden death [Fatal]
  - Urinary tract infection [Unknown]
  - Anaemia [Unknown]
  - Asthenia [Unknown]
